FAERS Safety Report 9441210 (Version 1)
Quarter: 2013Q3

REPORT INFORMATION
  Report Type: Spontaneous
  Country: TR (occurrence: None)
  Receive Date: 20130801
  Receipt Date: 20130801
  Transmission Date: 20140515
  Serious: Yes (Life-Threatening, Hospitalization)
  Sender: FDA-Public Use
  Company Number: B0911510A

PATIENT
  Age: 62 Year
  Sex: Male

DRUGS (1)
  1. PROPAFENONE HYDROCHLORIDE [Suspect]
     Indication: ATRIAL FIBRILLATION
     Dosage: UNKNOWN DOSAGE, INTRAVENOUS
     Route: 042

REACTIONS (8)
  - Brugada syndrome [None]
  - Hypotension [None]
  - Bundle branch block right [None]
  - Electrocardiogram ST segment elevation [None]
  - Electrocardiogram ST segment depression [None]
  - Chest pain [None]
  - Palpitations [None]
  - Atrial fibrillation [None]
